FAERS Safety Report 12757816 (Version 2)
Quarter: 2017Q3

REPORT INFORMATION
  Report Type: Spontaneous
  Country: US (occurrence: US)
  Receive Date: 20160919
  Receipt Date: 20170705
  Transmission Date: 20171127
  Serious: No
  Sender: FDA-Public Use
  Company Number: US-PFIZER INC-2016430458

PATIENT
  Age: 43 Year
  Sex: Male

DRUGS (3)
  1. EPIRUBICIN HCL [Suspect]
     Active Substance: EPIRUBICIN HYDROCHLORIDE
     Dosage: 50 MG, UNK (50MG/M2), CYCLIC
     Route: 040
  2. 5-FLUOROURACIL [Suspect]
     Active Substance: FLUOROURACIL
     Dosage: 1600 MG, UNK (200MG/M2 OVER 96 HRS), CYCLIC
     Route: 041
  3. CISPLATIN. [Suspect]
     Active Substance: CISPLATIN
     Dosage: 120 MG, UNK (60MG/M2), CYCLIC
     Route: 041

REACTIONS (2)
  - Jaundice [Unknown]
  - Bone pain [Unknown]
